FAERS Safety Report 15334231 (Version 1)
Quarter: 2018Q3

REPORT INFORMATION
  Report Type: Spontaneous
  Country: US (occurrence: US)
  Receive Date: 20180827
  Receipt Date: 20180827
  Transmission Date: 20181010
  Serious: Yes (Hospitalization)
  Sender: FDA-Public Use
  Company Number: None

PATIENT
  Age: 72 Year
  Sex: Male
  Weight: 101.97 kg

DRUGS (2)
  1. TAXOL [Suspect]
     Active Substance: PACLITAXEL
     Dates: end: 20180809
  2. CARBOPLATIN. [Suspect]
     Active Substance: CARBOPLATIN
     Dates: end: 20180809

REACTIONS (7)
  - Chest pain [None]
  - Atrial fibrillation [None]
  - Cough [None]
  - Pericarditis [None]
  - Dyspnoea [None]
  - Hyperhidrosis [None]
  - Electrocardiogram ST segment elevation [None]

NARRATIVE: CASE EVENT DATE: 20180811
